FAERS Safety Report 8006953-7 (Version None)
Quarter: 2011Q4

REPORT INFORMATION
  Report Type: 
  Country: None (occurrence: None)
  Receive Date: 20111227
  Receipt Date: 20111213
  Transmission Date: 20120403
  Serious: Yes (Hospitalization)
  Sender: FDA-Public Use
  Company Number: US-UCBSA-047410

PATIENT
  Age: 44 Year
  Sex: Female
  Weight: 44.9 kg

DRUGS (51)
  1. ACETAMINOPHEN [Concomitant]
     Route: 042
     Dates: start: 20110926, end: 20110927
  2. ERTAPENEM [Concomitant]
     Dosage: 50 ML
     Route: 042
     Dates: start: 20110921
  3. FAMOTIDINE [Concomitant]
     Dosage: 3 DAYS ONLY
     Route: 042
     Dates: start: 20110921, end: 20110924
  4. GENTAMICIN SULFATE [Concomitant]
     Dates: start: 20110921
  5. MAGNESIUM SULFATE [Concomitant]
     Route: 042
     Dates: start: 20110921, end: 20110923
  6. DEXTROSE SALINE [Concomitant]
     Route: 042
     Dates: start: 20110922, end: 20110922
  7. FENTANYL CITRATE [Concomitant]
     Route: 042
     Dates: start: 20110921
  8. CIMZIA [Suspect]
     Indication: CROHN'S DISEASE
     Route: 058
     Dates: start: 20110328
  9. ACETAMINOPHEN [Concomitant]
     Route: 042
     Dates: start: 20110922, end: 20110924
  10. KETOROLAC TROMETHAMINE [Concomitant]
     Route: 042
     Dates: start: 20110922, end: 20110929
  11. LIDOCAINE [Concomitant]
     Dosage: 5 ML
     Dates: start: 20110926, end: 20110926
  12. ONDASETRON HCL [Concomitant]
     Route: 042
     Dates: start: 20110921
  13. PHENYLEPHRINE HCL [Concomitant]
     Route: 042
     Dates: start: 20110921
  14. ROCURONIUM BROMIDE [Concomitant]
     Route: 042
     Dates: start: 20110921
  15. ZALEPLON [Concomitant]
     Dosage: ONCE AT NIGHT
     Route: 048
     Dates: start: 20110924, end: 20111024
  16. ACETAMINOPHEN [Concomitant]
     Route: 042
     Dates: start: 20110929, end: 20111001
  17. ERGOCALCIFEROL [Concomitant]
     Dosage: 1 CAPSULE
     Route: 048
     Dates: start: 20110921, end: 20110921
  18. HEPARIN SODIUM [Concomitant]
     Dosage: 5000 UNITS Q12H10
     Route: 058
     Dates: start: 20110921
  19. PANTOPRAZOLE [Concomitant]
     Route: 042
     Dates: start: 20110924
  20. ACETAMINOPHEN [Concomitant]
     Dosage: 1000 MG. Q8H4
     Route: 042
     Dates: start: 20110926, end: 20110927
  21. ACETAMINOPHEN [Concomitant]
     Route: 042
     Dates: start: 20110924, end: 20110925
  22. GLYCOPYRROLATE [Concomitant]
     Dosage: G-TUBE
     Dates: start: 20110921
  23. HYOSCYAMINE SULFATE [Concomitant]
     Dosage: ONCE AT BED TIME
     Route: 048
     Dates: start: 20110921, end: 20110921
  24. NEOSTIGMINE [Concomitant]
     Route: 030
     Dates: start: 20110921
  25. PROMETHAZINE HCL [Concomitant]
     Route: 042
     Dates: start: 20110921
  26. PROPOFOL [Concomitant]
     Route: 042
     Dates: start: 20110921
  27. OXYCODONE HCL [Concomitant]
     Route: 048
     Dates: start: 20110924, end: 20111002
  28. ACETAMINOPHEN [Concomitant]
     Route: 054
     Dates: start: 20110921, end: 20111021
  29. ACETAMINOPHEN [Concomitant]
     Route: 048
     Dates: start: 20110921, end: 20111021
  30. ALVIMOPAN [Concomitant]
     Route: 048
     Dates: start: 20110921
  31. SODIUM CHLORIDE [Concomitant]
     Route: 042
     Dates: start: 20110921
  32. DIPHENHYDRAMINE HCL [Concomitant]
     Route: 048
     Dates: start: 20110921, end: 20110921
  33. ACETAMINOPHEN [Concomitant]
     Route: 048
     Dates: start: 20110930, end: 20110930
  34. KETOROLAC TROMETHAMINE [Concomitant]
     Route: 030
     Dates: start: 20110921, end: 20110921
  35. METOCLOPRAMIDE HYDROCHLORIDE [Concomitant]
     Route: 042
     Dates: start: 20110921, end: 20110923
  36. NALOXONE HCL [Concomitant]
     Route: 042
     Dates: start: 20110921, end: 20111021
  37. NON FORMULATORY ITEMS [Concomitant]
     Route: 042
     Dates: start: 20110921, end: 20111021
  38. TPN [Concomitant]
  39. ACETAMINOPHEN [Concomitant]
     Route: 042
     Dates: start: 20110924, end: 20110927
  40. ACETAMINOPHEN [Concomitant]
     Route: 042
     Dates: start: 20110924, end: 20110924
  41. LIDOCAINE [Concomitant]
     Dates: start: 20110921, end: 20110925
  42. MAGNESIUM SULFATE [Concomitant]
     Route: 042
     Dates: start: 20110921, end: 20110921
  43. DIPHENHYDRAMINE HCL [Concomitant]
     Route: 048
     Dates: start: 20110921, end: 20110921
  44. DIPHENHYDRAMINE HCL [Concomitant]
     Route: 042
     Dates: start: 20110924, end: 20110929
  45. SALINE [Concomitant]
     Route: 042
     Dates: start: 20110921, end: 20111021
  46. HYDROMORPHONE HCL [Concomitant]
     Dosage: 0.5-1 MG
     Route: 042
     Dates: start: 20110921
  47. MAGNESIUM SULFATE [Concomitant]
     Dates: start: 20110925, end: 20110925
  48. MIDAZOLAM HCL [Concomitant]
     Route: 042
     Dates: start: 20110921
  49. MORPHINE SULFATE [Concomitant]
     Route: 042
     Dates: start: 20110921
  50. PROCHLORPERAZINE EDISYLATE [Concomitant]
     Dosage: 5-10 MG, ONCE IN 6 HOURS
     Route: 042
     Dates: start: 20110921, end: 20110921
  51. LACTATED RINGER'S [Concomitant]
     Route: 042
     Dates: start: 20110921

REACTIONS (16)
  - PYREXIA [None]
  - PNEUMOPERITONEUM [None]
  - WHITE BLOOD CELL COUNT INCREASED [None]
  - BLOOD GLUCOSE INCREASED [None]
  - ATELECTASIS [None]
  - BLOOD POTASSIUM DECREASED [None]
  - ASCITES [None]
  - CATHETER SITE HAEMORRHAGE [None]
  - HAEMOGLOBIN DECREASED [None]
  - RED BLOOD CELL COUNT DECREASED [None]
  - PLEURAL EFFUSION [None]
  - HAEMORRHAGE SUBCUTANEOUS [None]
  - CYST [None]
  - PLATELET COUNT DECREASED [None]
  - CHOLELITHIASIS [None]
  - CULTURE WOUND POSITIVE [None]
